FAERS Safety Report 7091655-4 (Version None)
Quarter: 2010Q4

REPORT INFORMATION
  Report Type: 
  Country: None (occurrence: None)
  Receive Date: 20101109
  Receipt Date: 20090427
  Transmission Date: 20110411
  Serious: No
  Sender: FDA-Public Use
  Company Number: US-KINGPHARMUSA00001-K200900501

PATIENT
  Age: 45 Year
  Sex: Female

DRUGS (1)
  1. EPIPEN [Suspect]
     Dosage: 0.3 MG, SINGLE
     Dates: start: 20090427, end: 20090427

REACTIONS (1)
  - ACCIDENTAL EXPOSURE [None]
